FAERS Safety Report 24737609 (Version 1)
Quarter: 2024Q4

REPORT INFORMATION
  Report Type: Spontaneous
  Country: ES (occurrence: ES)
  Receive Date: 20241216
  Receipt Date: 20241216
  Transmission Date: 20250114
  Serious: Yes (Death, Other)
  Sender: PFIZER
  Company Number: ES-PFIZER INC-PV202400161294

PATIENT
  Age: 41 Year
  Sex: Male

DRUGS (6)
  1. BEVACIZUMAB [Suspect]
     Active Substance: BEVACIZUMAB
     Indication: Radiation necrosis
     Dosage: 7.5 MG/KG, CYCLIC, EVERY 15 DAYS AND THEN EVERY 21 DAYS
     Route: 042
     Dates: start: 202306
  2. BEVACIZUMAB [Suspect]
     Active Substance: BEVACIZUMAB
     Indication: Glioblastoma
  3. REGORAFENIB [Suspect]
     Active Substance: REGORAFENIB
     Indication: Glioblastoma
     Dosage: 160 MG, 1X/DAY, FOR 21 DAYS OF A 28-DAY CYCLE
     Dates: start: 202304
  4. REGORAFENIB [Suspect]
     Active Substance: REGORAFENIB
     Dosage: 120 MG, 1X/DAY, CYCLIC
  5. REGORAFENIB [Suspect]
     Active Substance: REGORAFENIB
     Dosage: 80 MG, 1X/DAY, CYCLIC
  6. REGORAFENIB [Suspect]
     Active Substance: REGORAFENIB
     Dosage: 40 MG, 1X/DAY, CYCLIC

REACTIONS (4)
  - Cerebral haemorrhage [Fatal]
  - Palmar-plantar erythrodysaesthesia syndrome [Unknown]
  - Off label use [Unknown]
  - Drug effective for unapproved indication [Unknown]
